FAERS Safety Report 15149077 (Version 1)
Quarter: 2018Q3

REPORT INFORMATION
  Report Type: Spontaneous
  Country: IN (occurrence: IN)
  Receive Date: 20180716
  Receipt Date: 20180716
  Transmission Date: 20181010
  Serious: Yes (Hospitalization)
  Sender: FDA-Public Use
  Company Number: IN-PFIZER INC-2018282475

PATIENT
  Age: 31 Year
  Sex: Male

DRUGS (3)
  1. RANZOL [Concomitant]
     Dosage: 200 MG, 1X/DAY (OD)
  2. ATGAM [Suspect]
     Active Substance: EQUINE THYMOCYTE IMMUNE GLOBULIN
     Indication: APLASTIC ANAEMIA
     Dosage: 250 MG, UNK (44 VIALS)
     Route: 042
  3. FOLIC ACID. [Concomitant]
     Active Substance: FOLIC ACID

REACTIONS (3)
  - Fatigue [Unknown]
  - Arthralgia [Unknown]
  - Asthenia [Unknown]
